FAERS Safety Report 15731282 (Version 1)
Quarter: 2018Q4

REPORT INFORMATION
  Report Type: Spontaneous
  Country: US (occurrence: US)
  Receive Date: 20181217
  Receipt Date: 20181217
  Transmission Date: 20190205
  Serious: No
  Sender: FDA-Public Use
  Company Number: US-009507513-1812USA001899

PATIENT
  Sex: Female
  Weight: 69.4 kg

DRUGS (5)
  1. SIMVASTATIN. [Concomitant]
     Active Substance: SIMVASTATIN
     Dosage: UNK
     Dates: start: 2009
  2. VALSARTAN. [Suspect]
     Active Substance: VALSARTAN
     Dosage: UNK
     Dates: start: 2018, end: 2018
  3. FOSAMAX [Suspect]
     Active Substance: ALENDRONATE SODIUM
     Indication: OSTEOPOROSIS
     Dosage: UNK
     Route: 048
     Dates: start: 2016, end: 201802
  4. VITAMIN D [Concomitant]
     Active Substance: CHOLECALCIFEROL
     Dosage: 1000IU PER DAY
  5. VALSARTAN. [Suspect]
     Active Substance: VALSARTAN
     Indication: PALPITATIONS
     Dosage: 160 MG, 1X/DAY
     Route: 048
     Dates: start: 20171226, end: 2018

REACTIONS (4)
  - Tongue discolouration [Not Recovered/Not Resolved]
  - Paraesthesia oral [Not Recovered/Not Resolved]
  - Alopecia [Not Recovered/Not Resolved]
  - Paraesthesia [Not Recovered/Not Resolved]

NARRATIVE: CASE EVENT DATE: 2018
